FAERS Safety Report 5675439-7 (Version None)
Quarter: 2008Q1

REPORT INFORMATION
  Report Type: 
  Country: None (occurrence: None)
  Receive Date: 20080321
  Receipt Date: 20080310
  Transmission Date: 20080703
  Serious: Yes (Death)
  Sender: FDA-Public Use
  Company Number: GB-RANBAXY-2008RR-13674

PATIENT

DRUGS (2)
  1. FLUOXETINE [Suspect]
     Indication: DEPRESSION
  2. SULPIRIDE [Suspect]
     Indication: SCHIZOPHRENIA

REACTIONS (4)
  - CONFUSIONAL STATE [None]
  - DRUG TOXICITY [None]
  - MALAISE [None]
  - PNEUMONIA [None]
